FAERS Safety Report 24953824 (Version 4)
Quarter: 2025Q1

REPORT INFORMATION
  Report Type: Spontaneous
  Country: CH (occurrence: CH)
  Receive Date: 20250211
  Receipt Date: 20250321
  Transmission Date: 20250408
  Serious: Yes (Death, Other)
  Sender: ALEXION PHARMACEUTICALS
  Company Number: CH-ASTRAZENECA-202502CHE003227CH

PATIENT
  Age: 59 Year
  Weight: 75 kg

DRUGS (16)
  1. IMFINZI [Suspect]
     Active Substance: DURVALUMAB
     Indication: Hepatocellular carcinoma
     Route: 065
  2. Neurodol [Concomitant]
  3. NORFLOXACIN [Concomitant]
     Active Substance: NORFLOXACIN
  4. QUETIAPINE [Concomitant]
     Active Substance: QUETIAPINE
  5. ZOLPIDEM [Concomitant]
     Active Substance: ZOLPIDEM TARTRATE
  6. CARVEDILOL [Concomitant]
     Active Substance: CARVEDILOL
  7. MAGNESIUM ASPARTATE HYDROCHLORIDE [Concomitant]
     Active Substance: MAGNESIUM ASPARTATE HYDROCHLORIDE
  8. DUPHALAC [Concomitant]
     Active Substance: LACTULOSE
  9. PREGABALIN [Concomitant]
     Active Substance: PREGABALIN
  10. FOLIC ACID [Concomitant]
     Active Substance: FOLIC ACID
  11. AMLODIPINE BESYLATE [Concomitant]
     Active Substance: AMLODIPINE BESYLATE
  12. ASPIRIN [Concomitant]
     Active Substance: ASPIRIN
  13. PANTOPRAZOLE SODIUM [Concomitant]
     Active Substance: PANTOPRAZOLE SODIUM
  14. LEVEMIR [Concomitant]
     Active Substance: INSULIN DETEMIR
  15. CIPRALEX [Concomitant]
     Active Substance: ESCITALOPRAM OXALATE
  16. THIAMINE HYDROCHLORIDE [Concomitant]
     Active Substance: THIAMINE HYDROCHLORIDE

REACTIONS (1)
  - Death [Fatal]
